FAERS Safety Report 4794419-7 (Version None)
Quarter: 2005Q4

REPORT INFORMATION
  Report Type: 
  Country: None (occurrence: None)
  Receive Date: 20051011
  Receipt Date: 20050930
  Transmission Date: 20060501
  Serious: Yes (Other)
  Sender: FDA-Public Use
  Company Number: US-ROCHE-419894

PATIENT
  Age: 80 Year
  Sex: Female

DRUGS (3)
  1. BONIVA [Suspect]
     Indication: OSTEOPOROSIS
     Dosage: DOSE: 150MG PER MONTH.
     Route: 048
     Dates: start: 20050830
  2. LIPITOR [Concomitant]
     Dosage: DOSAGE REGIMEN REPORTED AS ^QD^.
     Route: 048
     Dates: start: 20050615
  3. LABETALOL HYDROCHLORIDE [Concomitant]
     Indication: HYPERTENSION
     Dosage: DOSAGE REGIMEN REPORTED AS ^QD^.
     Route: 048

REACTIONS (2)
  - DISEASE PROGRESSION [None]
  - MACULAR DEGENERATION [None]
